FAERS Safety Report 14976987 (Version 1)
Quarter: 2018Q2

REPORT INFORMATION
  Report Type: Spontaneous
  Country: FR (occurrence: FR)
  Receive Date: 20180605
  Receipt Date: 20180605
  Transmission Date: 20180711
  Serious: Yes (Hospitalization)
  Sender: FDA-Public Use
  Company Number: FR-009507513-1806FRA000894

PATIENT
  Age: 59 Year
  Sex: Male
  Weight: 82 kg

DRUGS (1)
  1. KEYTRUDA [Suspect]
     Active Substance: PEMBROLIZUMAB
     Indication: URETHRAL CANCER METASTATIC
     Dosage: 200 MG, QOW (ALSO REPORTED AS 3 CYCLE IN TOTAL)
     Route: 042
     Dates: start: 20180201, end: 20180321

REACTIONS (1)
  - Immune thrombocytopenic purpura [Not Recovered/Not Resolved]

NARRATIVE: CASE EVENT DATE: 20180419
